FAERS Safety Report 25174519 (Version 1)
Quarter: 2025Q2

REPORT INFORMATION
  Report Type: Spontaneous
  Country: US (occurrence: US)
  Receive Date: 20250408
  Receipt Date: 20250408
  Transmission Date: 20250717
  Serious: No
  Sender: FERRING
  Company Number: US-FERRINGPH-2024FE03872

PATIENT
  Sex: Male

DRUGS (1)
  1. FIRMAGON [Suspect]
     Active Substance: DEGARELIX ACETATE
     Indication: Hormone-dependent prostate cancer
     Route: 065
     Dates: start: 202306

REACTIONS (6)
  - Prostatic specific antigen increased [Unknown]
  - Blood testosterone decreased [Unknown]
  - Blood creatinine decreased [Unknown]
  - Dialysis efficacy test abnormal [Unknown]
  - Blood triglycerides increased [Unknown]
  - Wrong technique in product usage process [Recovered/Resolved]
